FAERS Safety Report 7571085-9 (Version None)
Quarter: 2011Q2

REPORT INFORMATION
  Report Type: 
  Country: None (occurrence: None)
  Receive Date: 20110624
  Receipt Date: 20110613
  Transmission Date: 20111010
  Serious: Yes (Other)
  Sender: FDA-Public Use
  Company Number: JP-CELGENEUS-087-21880-10111946

PATIENT
  Sex: Male
  Weight: 65.2 kg

DRUGS (32)
  1. REVLIMID [Suspect]
     Dosage: 25 MILLIGRAM
     Route: 048
     Dates: start: 20110105, end: 20110125
  2. KETOPROFEN [Concomitant]
     Route: 062
     Dates: start: 20101012, end: 20101109
  3. LAXOBERON [Concomitant]
     Indication: CONSTIPATION
     Dosage: 10 DROPS
     Route: 048
     Dates: start: 20100727, end: 20101109
  4. MAGMITT [Concomitant]
     Dosage: 1320 MILLIGRAM
     Route: 048
     Dates: start: 20110105, end: 20110329
  5. REVLIMID [Suspect]
     Dosage: 25 MILLIGRAM
     Route: 048
     Dates: start: 20101208, end: 20101228
  6. DEXAMETHASONE [Suspect]
     Dosage: 40 MILLIGRAM
     Route: 048
     Dates: start: 20110105, end: 20110125
  7. DEXAMETHASONE [Suspect]
     Dosage: 40 MILLIGRAM
     Route: 048
     Dates: start: 20110202, end: 20110223
  8. ASPIRIN [Suspect]
     Indication: PROPHYLAXIS
     Dosage: 100 MILLIGRAM
     Route: 048
     Dates: start: 20101005, end: 20101218
  9. FAMOTIDINE [Concomitant]
     Indication: PROPHYLAXIS
     Dosage: 20 MILLIGRAM
     Route: 048
     Dates: start: 20101001, end: 20110104
  10. SELBEX [Concomitant]
     Indication: PROPHYLAXIS
     Dosage: 100 MILLIGRAM
     Route: 048
     Dates: start: 20100727, end: 20110329
  11. LOXONIN [Concomitant]
     Dosage: 10 MILLIGRAM
     Route: 048
     Dates: start: 20100727, end: 20101109
  12. MAGMITT [Concomitant]
     Dosage: 1980 MILLIGRAM
     Route: 048
     Dates: start: 20101110, end: 20110104
  13. REVLIMID [Suspect]
     Indication: MULTIPLE MYELOMA
     Dosage: 25 MILLIGRAM
     Route: 048
     Dates: start: 20101005, end: 20101010
  14. REVLIMID [Suspect]
     Dosage: 25 MILLIGRAM
     Route: 048
     Dates: start: 20110202, end: 20110222
  15. DEXAMETHASONE [Suspect]
     Indication: MULTIPLE MYELOMA
     Dosage: 40 MILLIGRAM
     Route: 048
     Dates: start: 20101005, end: 20101008
  16. MAGMITT [Concomitant]
     Indication: CONSTIPATION
     Dosage: 1320 MILLIGRAM
     Route: 048
     Dates: start: 20101001, end: 20101109
  17. BACTRIM [Concomitant]
     Indication: PROPHYLAXIS
     Dosage: 2 TABLET
     Route: 048
     Dates: start: 20101014, end: 20101109
  18. REVLIMID [Suspect]
     Dosage: 25 MILLIGRAM
     Route: 048
     Dates: start: 20101015, end: 20101029
  19. REVLIMID [Suspect]
     Dosage: 25 MILLIGRAM
     Route: 048
     Dates: start: 20101110, end: 20101130
  20. DEXAMETHASONE [Suspect]
     Dosage: 40 MILLIGRAM
     Route: 048
     Dates: start: 20101025, end: 20101028
  21. DEXAMETHASONE [Suspect]
     Dosage: 40 MILLIGRAM
     Route: 048
     Dates: start: 20101208, end: 20101229
  22. GOSHA-JINKI-GAN [Concomitant]
     Dosage: 5 GRAM
     Route: 048
     Dates: start: 20110105, end: 20110329
  23. BACTRIM [Concomitant]
     Dosage: 4 TABLET
     Route: 048
     Dates: start: 20101110, end: 20110104
  24. REVLIMID [Suspect]
     Dosage: 25 MILLIGRAM
     Route: 048
     Dates: start: 20110302
  25. DEXAMETHASONE [Suspect]
     Dosage: 40 MILLIGRAM
     Route: 048
     Dates: start: 20101110, end: 20101129
  26. VITAMEDIN [Concomitant]
     Dosage: 2 CAPSULE
     Route: 048
     Dates: start: 20100727, end: 20110329
  27. DAI-KENCHU-TO [Concomitant]
     Dosage: 2.5 GRAM
     Route: 048
     Dates: start: 20110105, end: 20110329
  28. ASPIRIN [Suspect]
     Dosage: 100 MILLIGRAM
     Route: 048
     Dates: start: 20110101, end: 20110104
  29. ASPIRIN [Suspect]
     Dosage: 100 MILLIGRAM
     Route: 048
     Dates: start: 20110106, end: 20110215
  30. GOSHA-JINKI-GAN [Concomitant]
     Dosage: 7.5 GRAM
     Route: 048
     Dates: start: 20100727, end: 20110104
  31. DAI-KENCHU-TO [Concomitant]
     Indication: CONSTIPATION
     Dosage: 7.5 GRAM
     Route: 048
     Dates: start: 20101001, end: 20110104
  32. BACTRIM [Concomitant]
     Dosage: 2 TABLET
     Route: 048
     Dates: start: 20110106, end: 20110328

REACTIONS (13)
  - EYE INJURY [None]
  - C-REACTIVE PROTEIN INCREASED [None]
  - HEPATIC FUNCTION ABNORMAL [None]
  - EPISTAXIS [None]
  - CONSTIPATION [None]
  - PLATELET COUNT DECREASED [None]
  - NEUTROPHIL COUNT DECREASED [None]
  - INSOMNIA [None]
  - WHITE BLOOD CELL COUNT INCREASED [None]
  - DIZZINESS [None]
  - DEEP VEIN THROMBOSIS [None]
  - ANAEMIA [None]
  - WHITE BLOOD CELL COUNT DECREASED [None]
